FAERS Safety Report 11769530 (Version 1)
Quarter: 2015Q4

REPORT INFORMATION
  Report Type: Report from Study
  Country: US (occurrence: US)
  Receive Date: 20151123
  Receipt Date: 20151123
  Transmission Date: 20160304
  Serious: No
  Sender: FDA-Public Use
  Company Number: US-CELGENEUS-USA-2015102622

PATIENT

DRUGS (3)
  1. THALOMID [Suspect]
     Active Substance: THALIDOMIDE
     Indication: PRODUCT USED FOR UNKNOWN INDICATION
     Route: 048
  2. TAXOL [Concomitant]
     Active Substance: PACLITAXEL
     Indication: PRODUCT USED FOR UNKNOWN INDICATION
     Route: 065
  3. THALOMID [Suspect]
     Active Substance: THALIDOMIDE
     Route: 048

REACTIONS (7)
  - Abnormal behaviour [Unknown]
  - Balance disorder [Unknown]
  - Thinking abnormal [Unknown]
  - Crying [Unknown]
  - Feeling abnormal [Recovering/Resolving]
  - Gait disturbance [Unknown]
  - Tongue movement disturbance [Unknown]
